FAERS Safety Report 8950889 (Version 1)
Quarter: 2012Q4

REPORT INFORMATION
  Report Type: Spontaneous
  Country: US (occurrence: None)
  Receive Date: 20121116
  Receipt Date: 20121116
  Transmission Date: 20130627
  Serious: No
  Sender: FDA-Public Use
  Company Number: M2012-028

PATIENT
  Age: 14 Year
  Sex: Female

DRUGS (4)
  1. FIRE ANT [Suspect]
     Indication: INSECT STING ALLERGY
     Dosage: injection
  2. FIRE ANT [Suspect]
     Indication: INSECT STING ALLERGY
     Dosage: injection
  3. FIRE ANT [Suspect]
     Indication: INSECT STING ALLERGY
     Dosage: injection
     Dates: start: 2012, end: 2012
  4. SINGULAR [Concomitant]

REACTIONS (1)
  - Asthenia [None]
